FAERS Safety Report 25190216 (Version 1)
Quarter: 2025Q2

REPORT INFORMATION
  Report Type: Spontaneous
  Country: FR (occurrence: FR)
  Receive Date: 20250411
  Receipt Date: 20250411
  Transmission Date: 20250717
  Serious: Yes (Other)
  Sender: MYLAN
  Company Number: None

PATIENT
  Age: 17 Year
  Sex: Male

DRUGS (1)
  1. XANAX [Suspect]
     Active Substance: ALPRAZOLAM
     Indication: Product used for unknown indication
     Dosage: UNK, QD, UP TO 20 TABLETS/DAY WITHOUT FURTHER INFORMATION

REACTIONS (2)
  - Drug dependence [Recovering/Resolving]
  - Illicit prescription attainment [Recovering/Resolving]
